FAERS Safety Report 7419884-8 (Version None)
Quarter: 2011Q2

REPORT INFORMATION
  Report Type: 
  Country: None (occurrence: None)
  Receive Date: 20110418
  Receipt Date: 20110405
  Transmission Date: 20111010
  Serious: Yes (Other)
  Sender: FDA-Public Use
  Company Number: TW-JNJFOC-20110305486

PATIENT
  Age: 63 Year
  Sex: Male
  Weight: 58.4 kg

DRUGS (7)
  1. HALDOL [Suspect]
     Indication: SCHIZOPHRENIA
     Dosage: AS REQUIRED
     Route: 065
  2. HALOPERIDOL [Suspect]
     Indication: SCHIZOPHRENIA
     Route: 065
  3. HALOPERIDOL [Suspect]
     Indication: MENTAL DISORDER
     Route: 065
  4. METHYCOBAL [Concomitant]
     Indication: ANAEMIA
     Route: 065
  5. HALDOL [Suspect]
     Indication: MENTAL DISORDER
     Dosage: AS REQUIRED
     Route: 065
  6. VITAMIN K1 [Concomitant]
     Indication: ANAEMIA
     Route: 048
  7. FLUOXETINE [Interacting]
     Indication: PRODUCT USED FOR UNKNOWN INDICATION
     Route: 065

REACTIONS (5)
  - LEUKOPENIA [None]
  - PARKINSONISM [None]
  - TARDIVE DYSKINESIA [None]
  - DRUG INTERACTION [None]
  - THROMBOCYTOPENIA [None]
